FAERS Safety Report 18755804 (Version 1)
Quarter: 2021Q1

REPORT INFORMATION
  Report Type: Spontaneous
  Country: US (occurrence: US)
  Receive Date: 20210115
  Receipt Date: 20210115
  Transmission Date: 20210419
  Serious: Yes (Death)
  Sender: FDA-Public Use
  Company Number: None

PATIENT
  Age: 64 Year
  Sex: Male
  Weight: 95.25 kg

DRUGS (28)
  1. AMIODARONE [Concomitant]
     Active Substance: AMIODARONE
  2. DICLOFENAC [Concomitant]
     Active Substance: DICLOFENAC
  3. GABAPENTIN. [Concomitant]
     Active Substance: GABAPENTIN
  4. ONGLYZA [Concomitant]
     Active Substance: SAXAGLIPTIN HYDROCHLORIDE
  5. TOPROL XL [Concomitant]
     Active Substance: METOPROLOL SUCCINATE
  6. KOGENATE FS [Suspect]
     Active Substance: ANTIHEMOPHILIC FACTOR, HUMAN RECOMBINANT
     Indication: FACTOR VIII DEFICIENCY
     Route: 042
     Dates: start: 20120706, end: 20200817
  7. KOGENATE FS [Suspect]
     Active Substance: ANTIHEMOPHILIC FACTOR, HUMAN RECOMBINANT
     Indication: FACTOR VIII DEFICIENCY
     Dosage: 3108 UNITS 3 DAYS WEEKLY
     Dates: start: 20120706, end: 20200817
  8. CLINDAMYCIN. [Concomitant]
     Active Substance: CLINDAMYCIN
  9. FUROSEMID [Concomitant]
     Active Substance: FUROSEMIDE
  10. HEPARIN [Concomitant]
     Active Substance: HEPARIN SODIUM
  11. KOGENATE [Concomitant]
     Active Substance: ANTIHEMOPHILIC FACTOR, HUMAN RECOMBINANT
  12. MAG?OXIDE [Concomitant]
     Active Substance: MAGNESIUM OXIDE
  13. OXYCODONE [Concomitant]
     Active Substance: OXYCODONE
  14. ATORVASTATIN [Concomitant]
     Active Substance: ATORVASTATIN
  15. LOSARTAN. [Concomitant]
     Active Substance: LOSARTAN
  16. DULOXETINE. [Concomitant]
     Active Substance: DULOXETINE
  17. GLIPIZIDE ER [Concomitant]
     Active Substance: GLIPIZIDE
  18. PRAVASTATIN. [Concomitant]
     Active Substance: PRAVASTATIN
  19. CEPHALEXIN. [Concomitant]
     Active Substance: CEPHALEXIN
  20. CLONIDINE. [Concomitant]
     Active Substance: CLONIDINE
  21. OXYCONTIN [Concomitant]
     Active Substance: OXYCODONE HYDROCHLORIDE
  22. CELEBREX [Concomitant]
     Active Substance: CELECOXIB
  23. HELIXATE [Concomitant]
     Active Substance: ANTIHEMOPHILIC FACTOR, HUMAN RECOMBINANT
  24. LISINOPRIL. [Concomitant]
     Active Substance: LISINOPRIL
  25. NEXIUM [Concomitant]
     Active Substance: ESOMEPRAZOLE MAGNESIUM
  26. NORMAL SALINE [Concomitant]
     Active Substance: SODIUM CHLORIDE
  27. ARMOUR THYROID [Concomitant]
     Active Substance: THYROID, PORCINE
  28. TAMSULOSIN [Concomitant]
     Active Substance: TAMSULOSIN

REACTIONS (1)
  - Pancreatic carcinoma [None]

NARRATIVE: CASE EVENT DATE: 20200817
